FAERS Safety Report 6871136-0 (Version None)
Quarter: 2010Q3

REPORT INFORMATION
  Report Type: 
  Country: None (occurrence: None)
  Receive Date: 20100723
  Receipt Date: 20100709
  Transmission Date: 20110219
  Serious: Yes (Hospitalization, Other)
  Sender: FDA-Public Use
  Company Number: GB-ROCHE-201064

PATIENT
  Sex: Female
  Weight: 1.8 kg

DRUGS (8)
  1. VESANOID [Suspect]
     Route: 064
     Dates: start: 19940812, end: 19941014
  2. PREDNISOLONE [Concomitant]
  3. FOLIC ACID [Concomitant]
  4. VITAMIN K TAB [Concomitant]
  5. SENNA [Concomitant]
     Indication: CONSTIPATION
  6. CO-DYDRAMOL [Concomitant]
     Indication: PAIN
  7. ACETAMINOPHEN WITH PROPOXYPHENE HCL TAB [Concomitant]
     Indication: PAIN
  8. VOLTAREN [Concomitant]
     Indication: PAIN

REACTIONS (8)
  - ABNORMAL BEHAVIOUR [None]
  - ASTHMA [None]
  - AUTISM [None]
  - HYPOCALCAEMIA [None]
  - HYPOGLYCAEMIA NEONATAL [None]
  - NEONATAL RESPIRATORY DISTRESS SYNDROME [None]
  - OBESITY [None]
  - PREMATURE BABY [None]
